FAERS Safety Report 6100891-2 (Version None)
Quarter: 2009Q1

REPORT INFORMATION
  Report Type: 
  Country: None (occurrence: None)
  Receive Date: 20090304
  Receipt Date: 20090224
  Transmission Date: 20090719
  Serious: Yes (Other)
  Sender: FDA-Public Use
  Company Number: MX-JNJFOC-20090206832

PATIENT
  Age: 67 Year
  Sex: Male

DRUGS (3)
  1. REOPRO [Suspect]
     Dosage: UNSPECIFED 12 HOUR INFUSION
     Route: 042
  2. REOPRO [Suspect]
     Indication: CORONARY ANGIOPLASTY
     Route: 042
  3. TENECTEPLASE [Concomitant]
     Indication: DRUG USE FOR UNKNOWN INDICATION

REACTIONS (1)
  - ISCHAEMIC CEREBRAL INFARCTION [None]
